FAERS Safety Report 9617811 (Version 2)
Quarter: 2013Q4

REPORT INFORMATION
  Report Type: Spontaneous
  Country: FR (occurrence: None)
  Receive Date: 20131009
  Receipt Date: 20131108
  Transmission Date: 20140711
  Serious: Yes (Hospitalization)
  Sender: FDA-Public Use
  Company Number: DSM-2013-00909

PATIENT
  Age: 51 Year
  Sex: Male
  Weight: 83 kg

DRUGS (2)
  1. COOLMETEC [Suspect]
     Indication: HYPERTENSION
     Route: 048
     Dates: start: 201304, end: 20130805
  2. TEMERIT [Suspect]
     Indication: HYPERTENSION
     Route: 048
     Dates: start: 201304, end: 20130822

REACTIONS (4)
  - Diarrhoea [None]
  - Weight decreased [None]
  - Dehydration [None]
  - Renal failure [None]
